APPROVED DRUG PRODUCT: BUPROPION HYDROCHLORIDE
Active Ingredient: BUPROPION HYDROCHLORIDE
Strength: 150MG
Dosage Form/Route: TABLET, EXTENDED RELEASE;ORAL
Application: A077415 | Product #001
Applicant: IMPAX LABORATORIES INC
Approved: Nov 26, 2008 | RLD: No | RS: No | Type: DISCN